FAERS Safety Report 8985282 (Version 1)
Quarter: 2012Q4

REPORT INFORMATION
  Report Type: 
  Country: US (occurrence: US)
  Receive Date: 20121226
  Receipt Date: 20121226
  Transmission Date: 20130627
  Serious: No
  Sender: FDA-Public Use
  Company Number: US-BAYER-2012-134684

PATIENT
  Age: 37 Year
  Sex: Male
  Weight: 77 kg

DRUGS (1)
  1. ALEVE CAPLET/TABLET,MIDOL EXTENDED RELIEF CAPLET [Suspect]
     Dosage: 3 DF, UNK
     Route: 048

REACTIONS (4)
  - Abdominal discomfort [Not Recovered/Not Resolved]
  - Inappropriate schedule of drug administration [None]
  - Abdominal pain upper [None]
  - Drug ineffective [None]
